FAERS Safety Report 11092506 (Version 1)
Quarter: 2015Q2

REPORT INFORMATION
  Report Type: Spontaneous
  Country: FR (occurrence: FR)
  Receive Date: 20150506
  Receipt Date: 20150506
  Transmission Date: 20150821
  Serious: Yes (Death)
  Sender: FDA-Public Use
  Company Number: FR-009507513-1504FRA024428

PATIENT
  Age: 29 Year
  Sex: Male

DRUGS (8)
  1. HYDROXYZINE HYDROCHLORIDE. [Concomitant]
     Active Substance: HYDROXYZINE HYDROCHLORIDE
     Dosage: 50 MG, PRN
     Route: 048
     Dates: start: 20150403, end: 20150406
  2. ACETAMINOPHEN. [Concomitant]
     Active Substance: ACETAMINOPHEN
     Dosage: 1 G, PRN
     Route: 048
     Dates: start: 20150402, end: 20150406
  3. LOVENOX [Concomitant]
     Active Substance: ENOXAPARIN SODIUM
     Dosage: 1 DF, QD
     Route: 058
     Dates: end: 20150406
  4. OGASTORO [Concomitant]
     Active Substance: LANSOPRAZOLE
     Dosage: 1 DF, QD
     Route: 048
     Dates: end: 20150406
  5. AMIKLIN [Concomitant]
     Active Substance: AMIKACIN SULFATE
     Dosage: 1.5 G, Q24H
     Route: 042
     Dates: start: 20150405, end: 20150406
  6. COLISTIN [Concomitant]
     Active Substance: COLISTIN
     Dosage: 1.5 MIU EVERY 12 HOURS
     Route: 042
     Dates: start: 20150405, end: 20150406
  7. IMIPENEM AND CILASTATIN [Suspect]
     Active Substance: CILASTATIN SODIUM\IMIPENEM
     Indication: BACTERIURIA
     Dosage: UNK UNK, Q6H
     Route: 042
     Dates: start: 20150406, end: 20150406
  8. HEPTAMINOL [Concomitant]
     Active Substance: HEPTAMINOL
     Dosage: 360 MG, TID
     Route: 048
     Dates: end: 20150406

REACTIONS (1)
  - Anaphylactoid shock [Fatal]

NARRATIVE: CASE EVENT DATE: 20150406
